FAERS Safety Report 17181639 (Version 1)
Quarter: 2019Q4

REPORT INFORMATION
  Report Type: Other
  Country: US (occurrence: US)
  Receive Date: 20191219
  Receipt Date: 20191219
  Transmission Date: 20200122
  Serious: Yes (Life-Threatening)
  Sender: FDA-Public Use
  Company Number: US-STANDARD HOMEOPATHIC COMPANY-2078033

PATIENT
  Age: 7 Month
  Sex: Male

DRUGS (1)
  1. BABY TEETHING (HYLAND HOMEOPATHIC) [Suspect]
     Active Substance: HOMEOPATHICS
     Indication: ORAL PAIN
     Route: 048
     Dates: start: 20191205, end: 20191205

REACTIONS (2)
  - Vomiting [Unknown]
  - Respiratory arrest [None]

NARRATIVE: CASE EVENT DATE: 20191205
